FAERS Safety Report 9897719 (Version 1)
Quarter: 2014Q1

REPORT INFORMATION
  Report Type: Report from Study
  Country: US (occurrence: US)
  Receive Date: 20140214
  Receipt Date: 20140214
  Transmission Date: 20141002
  Serious: Yes (Hospitalization)
  Sender: FDA-Public Use
  Company Number: US-BAYER-2014-020573

PATIENT
  Age: 55 Year
  Sex: Male
  Weight: 97.05 kg

DRUGS (12)
  1. SORAFENIB (RAF KINASE INHIBITOR) [Suspect]
     Indication: THYROID CANCER
     Dosage: 600 MG, QD
     Route: 048
     Dates: start: 20131003
  2. EVEROLIMUS [Suspect]
     Indication: THYROID CANCER
     Dosage: 10MG, QD
     Route: 048
     Dates: start: 20131003
  3. AMLODIPINE [Concomitant]
  4. ASPIRIN [Concomitant]
  5. ATORVASTATIN [Concomitant]
  6. BENAZEPRIL [Concomitant]
  7. CLOPIDOGREL [Concomitant]
  8. LEVOTHYROXINE SODIUM [Concomitant]
  9. FUROSEMIDE [Concomitant]
  10. METFORMIN [Concomitant]
  11. METOPROLOL [Concomitant]
  12. OXYCODONE [Concomitant]
     Dosage: UNK UNK, PRN

REACTIONS (3)
  - Dyspnoea [None]
  - Hypokalaemia [None]
  - Hypomagnesaemia [None]
